FAERS Safety Report 5684499-9 (Version None)
Quarter: 2008Q1

REPORT INFORMATION
  Report Type: 
  Country: None (occurrence: None)
  Receive Date: 20080328
  Receipt Date: 20080318
  Transmission Date: 20080703
  Serious: Yes (Death)
  Sender: FDA-Public Use
  Company Number: US-SANOFI-SYNTHELABO-A01200803234

PATIENT
  Sex: Female

DRUGS (18)
  1. LITHIUM CARBONATE [Concomitant]
     Indication: MOOD SWINGS
     Route: 048
  2. CLONAZEPAM [Concomitant]
     Indication: TACHYCARDIA
     Dosage: UNK. (2 MG, UP TO QID)
     Route: 048
  3. GABAPENTIN [Concomitant]
     Indication: NEURALGIA
     Dosage: 1-2 TABS (600 MG, QPM)
     Route: 048
  4. TRAZODONE HCL [Concomitant]
     Indication: DEPRESSION
     Route: 048
  5. ZOFRAN [Suspect]
     Indication: NAUSEA
     Dosage: UNK. (8 MG, UP TO TID)
     Route: 048
     Dates: start: 20070201
  6. METHOCARBAMOL [Concomitant]
     Indication: MUSCLE RELAXANT THERAPY
     Route: 048
  7. ASTELIN [Concomitant]
     Indication: SEASONAL ALLERGY
     Dosage: UNK
     Route: 045
  8. RISPERDAL [Concomitant]
     Indication: DEPRESSION
     Route: 048
     Dates: start: 20030101
  9. PROVIGIL [Concomitant]
     Indication: ASTHENIA
     Route: 048
     Dates: start: 20030101
  10. ZOLPIDEM [Suspect]
     Indication: INSOMNIA
     Route: 048
  11. ZOLPIDEM [Suspect]
     Indication: POST-TRAUMATIC STRESS DISORDER
     Route: 048
  12. CHANTIX [Interacting]
     Indication: SMOKING CESSATION THERAPY
     Route: 048
     Dates: start: 20070802
  13. PREVACID [Interacting]
     Indication: NAUSEA
     Route: 048
     Dates: start: 20060101
  14. TEMAZEPAM [Suspect]
     Indication: INSOMNIA
     Route: 048
  15. TEMAZEPAM [Suspect]
     Indication: POST-TRAUMATIC STRESS DISORDER
     Route: 048
  16. MIRTAZAPINE [Suspect]
     Indication: DEPRESSION
     Dosage: 90 MG (30 MG, 1 TAB QAM, 2 TAB QPM)
     Route: 048
     Dates: start: 20000101
  17. ACETAMINOPHEN AND HYDROCODONE BITARTRATE [Suspect]
     Indication: PAIN
     Dosage: 75/750 MG TABS (UNK., UP TO TID)
     Route: 048
     Dates: start: 19880101
  18. PROMETHAZINE [Suspect]
     Indication: NAUSEA
     Dosage: UNK. (25 MG EVERY 4-6 HOURS)
     Route: 048
     Dates: start: 20060101

REACTIONS (2)
  - DRUG INTERACTION [None]
  - DRUG TOXICITY [None]
